FAERS Safety Report 5192775-1 (Version None)
Quarter: 2006Q4

REPORT INFORMATION
  Report Type: 
  Country: None (occurrence: None)
  Receive Date: 20061228
  Receipt Date: 20061218
  Transmission Date: 20070319
  Serious: Yes (Hospitalization)
  Sender: FDA-Public Use
  Company Number: FR-BAYER-200611209BFR

PATIENT
  Age: 9 Month
  Weight: 7.75 kg

DRUGS (3)
  1. CIPROFLOXACIN [Suspect]
     Indication: PROPHYLAXIS
     Dates: start: 20061217, end: 20061217
  2. CIPROFLOXACIN [Suspect]
     Dosage: TOTAL DAILY DOSE: 120 MG
     Route: 042
     Dates: start: 20061213, end: 20061217
  3. AMIKLIN [Concomitant]
     Indication: PROPHYLAXIS
     Dates: start: 20061213, end: 20061217

REACTIONS (3)
  - ACCIDENTAL OVERDOSE [None]
  - INCORRECT ROUTE OF DRUG ADMINISTRATION [None]
  - NO ADVERSE DRUG EFFECT [None]
